FAERS Safety Report 19018319 (Version 2)
Quarter: 2021Q1

REPORT INFORMATION
  Report Type: Spontaneous
  Country: DE (occurrence: DE)
  Receive Date: 20210317
  Receipt Date: 20210317
  Transmission Date: 20210420
  Serious: Yes (Other)
  Sender: FDA-Public Use
  Company Number: DE-PFIZER INC-2021261524

PATIENT
  Age: 37 Year
  Sex: Female

DRUGS (6)
  1. THIOGUANINE ANHYDROUS [Concomitant]
     Active Substance: THIOGUANINE ANHYDROUS
     Dosage: UNK
  2. CYTARABINE. [Suspect]
     Active Substance: CYTARABINE
     Indication: ACUTE MYELOID LEUKAEMIA
     Dosage: 100 MG/M2 WAS INITIALLY GIVEN ONCE A DAY AS INDUCTION THERAPY, AND TWICE DAILY AFTER THREE DAYS
     Route: 042
     Dates: start: 19940112
  3. NOVANTRONE [Concomitant]
     Active Substance: MITOXANTRONE HYDROCHLORIDE
     Dosage: 17 MG
     Route: 042
     Dates: start: 19940211
  4. CYTARABINE. [Suspect]
     Active Substance: CYTARABINE
     Dosage: 100 MG/M2
     Route: 042
  5. CYTARABINE. [Suspect]
     Active Substance: CYTARABINE
     Dosage: 5000 MG, 2X/DAY, IN 3 HOURS
     Route: 042
     Dates: start: 19940209, end: 19940211
  6. DAUNORUBICIN HCL [Concomitant]
     Active Substance: DAUNORUBICIN HYDROCHLORIDE
     Dosage: UNK

REACTIONS (1)
  - Cerebellar syndrome [Recovered/Resolved]
